FAERS Safety Report 25254098 (Version 1)
Quarter: 2025Q2

REPORT INFORMATION
  Report Type: Spontaneous
  Country: IN (occurrence: IN)
  Receive Date: 20250430
  Receipt Date: 20250430
  Transmission Date: 20250716
  Serious: Yes (Hospitalization, Other)
  Sender: RANBAXY
  Company Number: IN-SUN PHARMACEUTICAL INDUSTRIES LTD-2025R1-505459

PATIENT
  Age: 30 Year
  Sex: Male

DRUGS (5)
  1. CLOPIDOGREL [Suspect]
     Active Substance: CLOPIDOGREL BISULFATE
     Indication: Thrombolysis
     Dosage: 75 MILLIGRAM, OD
     Route: 065
  2. METOPROLOL [Suspect]
     Active Substance: METOPROLOL
     Indication: Thrombolysis
     Dosage: 25 MILLIGRAM, OD
     Route: 065
  3. IVABRADINE [Suspect]
     Active Substance: IVABRADINE
     Indication: Thrombolysis
     Dosage: 2.5 MILLIGRAM, BID
     Route: 065
  4. ASPIRIN [Suspect]
     Active Substance: ASPIRIN
     Indication: Thrombolysis
     Dosage: 75 MILLIGRAM, OD
     Route: 065
  5. SPIRONOLACTONE\TORSEMIDE [Suspect]
     Active Substance: SPIRONOLACTONE\TORSEMIDE
     Indication: Thrombolysis
     Dosage: 10 MILLIGRAM, OD
     Route: 065

REACTIONS (3)
  - Dry gangrene [Unknown]
  - Coronary artery stenosis [Unknown]
  - Crepitations [Unknown]
